FAERS Safety Report 12854451 (Version 2)
Quarter: 2016Q4

REPORT INFORMATION
  Report Type: Spontaneous
  Country: US (occurrence: US)
  Receive Date: 20161017
  Receipt Date: 20161209
  Transmission Date: 20170207
  Serious: No
  Sender: FDA-Public Use
  Company Number: US-PFIZER INC-2016479808

PATIENT
  Age: 31 Year
  Sex: Female
  Weight: 100 kg

DRUGS (2)
  1. VANCOMYCIN HCL [Suspect]
     Active Substance: VANCOMYCIN HYDROCHLORIDE
     Indication: CELLULITIS
     Dosage: 2000 MG, 2X/DAY,  (EVERY 12 HOURS)
     Route: 042
     Dates: start: 20160929
  2. NORCO [Concomitant]
     Active Substance: ACETAMINOPHEN\HYDROCODONE BITARTRATE
     Indication: PAIN
     Dosage: 1 DF (HYDROCODONE BITARTRATE 5 MG/PARACETAMOL 325 MG) FOUR TIMES A DAY, EVERY 6 HOURS AS NEEDED
     Dates: start: 20160927

REACTIONS (2)
  - Red man syndrome [Not Recovered/Not Resolved]
  - Product lot number issue [Not Recovered/Not Resolved]

NARRATIVE: CASE EVENT DATE: 20161008
